FAERS Safety Report 19005888 (Version 1)
Quarter: 2021Q1

REPORT INFORMATION
  Report Type: Spontaneous
  Country: US (occurrence: US)
  Receive Date: 20210314
  Receipt Date: 20210314
  Transmission Date: 20210420
  Serious: Yes (Death, Hospitalization)
  Sender: FDA-Public Use
  Company Number: US-TEVA-2021-US-1887808

PATIENT
  Age: 55 Year
  Sex: Female

DRUGS (6)
  1. METHYLENE?BLUE [Suspect]
     Active Substance: METHYLENE BLUE
     Indication: OVERDOSE
     Dosage: 6 MG/KG DAILY;
     Route: 050
  2. METHYLENE?BLUE [Suspect]
     Active Substance: METHYLENE BLUE
     Indication: TOXICITY TO VARIOUS AGENTS
     Dosage: BOLUS OVER 20 MINUTES, FOLLOWED BY 0.25 MG/KG/HOUR INFUSION
     Route: 065
  3. DULOXETINE. [Concomitant]
     Active Substance: DULOXETINE
     Indication: PRODUCT USED FOR UNKNOWN INDICATION
     Route: 065
  4. AMLODIPINE [Suspect]
     Active Substance: AMLODIPINE BESYLATE
     Dosage: INGESTED HALF A BOTTLE OF AMLODIPINE
     Route: 048
  5. ALPRAZOLAM. [Concomitant]
     Active Substance: ALPRAZOLAM
     Indication: PRODUCT USED FOR UNKNOWN INDICATION
     Dosage: AT BEDTIME
     Route: 065
  6. AMLODIPINE [Suspect]
     Active Substance: AMLODIPINE BESYLATE
     Indication: OVERDOSE
     Dosage: 10 MILLIGRAM DAILY;
     Route: 048

REACTIONS (5)
  - Respiratory failure [Fatal]
  - Circulatory collapse [Fatal]
  - Toxicity to various agents [Fatal]
  - Off label use [Unknown]
  - Overdose [Fatal]
